FAERS Safety Report 19858290 (Version 1)
Quarter: 2021Q3

REPORT INFORMATION
  Report Type: Other
  Country: CA (occurrence: CA)
  Receive Date: 20210921
  Receipt Date: 20210921
  Transmission Date: 20211014
  Serious: Yes (Other)
  Sender: FDA-Public Use
  Company Number: CA-APOTEX-2021AP042721

PATIENT
  Sex: Male
  Weight: 2 kg

DRUGS (1)
  1. ACETAMINOPHEN. [Suspect]
     Active Substance: ACETAMINOPHEN
     Indication: MATERNAL DRUGS AFFECTING FOETUS
     Dosage: UNK
     Route: 065

REACTIONS (4)
  - Apgar score low [Recovered/Resolved]
  - Premature baby [Recovered/Resolved]
  - Encephalopathy [Recovered/Resolved]
  - Foetal heart rate deceleration abnormality [Recovered/Resolved]
